FAERS Safety Report 13401088 (Version 3)
Quarter: 2017Q3

REPORT INFORMATION
  Report Type: Report from Study
  Country: US (occurrence: US)
  Receive Date: 20170404
  Receipt Date: 20170712
  Transmission Date: 20171127
  Serious: Yes (Hospitalization, Other)
  Sender: FDA-Public Use
  Company Number: US-GILEAD-2017-0263984

PATIENT
  Age: 63 Year
  Sex: Female
  Weight: 72.56 kg

DRUGS (27)
  1. FOLIC ACID. [Concomitant]
     Active Substance: FOLIC ACID
  2. HYDROXYZINE [Concomitant]
     Active Substance: HYDROXYZINE HYDROCHLORIDE
  3. POLYETHYLENE GLYCOL [Concomitant]
     Active Substance: POLYETHYLENE GLYCOLS
  4. LORAZEPAM. [Concomitant]
     Active Substance: LORAZEPAM
  5. FUROSEMIDE. [Concomitant]
     Active Substance: FUROSEMIDE
  6. OMEPRAZOLE. [Concomitant]
     Active Substance: OMEPRAZOLE
  7. TRAMADOL. [Concomitant]
     Active Substance: TRAMADOL
  8. HYDROXYCHLOROQUINE                 /00072603/ [Concomitant]
     Active Substance: HYDROXYCHLOROQUINE SULFATE
  9. AMBRISENTAN [Suspect]
     Active Substance: AMBRISENTAN
     Indication: PULMONARY ARTERIAL HYPERTENSION
     Dosage: 5 MG, UNK
     Route: 048
     Dates: start: 20170120
  10. MULTIVITAMINS                      /00116001/ [Concomitant]
     Active Substance: VITAMINS
  11. WARFARIN [Concomitant]
     Active Substance: WARFARIN
  12. LIDOCAINE. [Concomitant]
     Active Substance: LIDOCAINE
  13. LIDODERM [Concomitant]
     Active Substance: LIDOCAINE
     Route: 061
  14. METOPROLOL. [Concomitant]
     Active Substance: METOPROLOL
  15. ONDANSETRON [Concomitant]
     Active Substance: ONDANSETRON
  16. TRAZODONE [Concomitant]
     Active Substance: TRAZODONE HYDROCHLORIDE
  17. AMBRISENTAN [Suspect]
     Active Substance: AMBRISENTAN
     Indication: SCLERODERMA
  18. ELIQUIS [Concomitant]
     Active Substance: APIXABAN
  19. ACETAMINOPHEN. [Concomitant]
     Active Substance: ACETAMINOPHEN
  20. LOPERAMIDE [Concomitant]
     Active Substance: LOPERAMIDE
  21. ALBUTEROL                          /00139501/ [Concomitant]
     Active Substance: ALBUTEROL
  22. SILDENAFIL. [Concomitant]
     Active Substance: SILDENAFIL
  23. VITAMIN D                          /00107901/ [Concomitant]
     Active Substance: ERGOCALCIFEROL
  24. ENOXAPARIN [Concomitant]
     Active Substance: ENOXAPARIN
  25. CARBIDOPA AND LEVODOPA [Concomitant]
     Active Substance: CARBIDOPA\LEVODOPA
  26. MICONAZOLE. [Concomitant]
     Active Substance: MICONAZOLE
  27. GABAPENTIN. [Concomitant]
     Active Substance: GABAPENTIN

REACTIONS (15)
  - Pruritus [Unknown]
  - Pulmonary embolism [Unknown]
  - Oesophageal motility disorder [Unknown]
  - Peripheral swelling [Unknown]
  - Pneumonia [Unknown]
  - Gastrointestinal haemorrhage [Unknown]
  - Mental status changes [Unknown]
  - Dysphagia [Unknown]
  - Raynaud^s phenomenon [Not Recovered/Not Resolved]
  - Musculoskeletal stiffness [Unknown]
  - Asthenia [Unknown]
  - Arthritis [Unknown]
  - Encephalopathy [Unknown]
  - Sensory loss [Unknown]
  - Dyspnoea [Unknown]
